FAERS Safety Report 12679486 (Version 1)
Quarter: 2016Q3

REPORT INFORMATION
  Report Type: Spontaneous
  Country: IT (occurrence: IT)
  Receive Date: 20160824
  Receipt Date: 20160824
  Transmission Date: 20161109
  Serious: Yes (Hospitalization)
  Sender: FDA-Public Use
  Company Number: IT-BAYER-2016-163270

PATIENT
  Age: 69 Year
  Sex: Male

DRUGS (2)
  1. UNOPROST [Concomitant]
     Dosage: UNK
  2. CARDIOASPIRIN [Suspect]
     Active Substance: ASPIRIN
     Indication: THROMBOSIS PROPHYLAXIS
     Dosage: DAILY DOSE 100 MG
     Route: 048
     Dates: start: 20160101, end: 20160701

REACTIONS (2)
  - Presyncope [Unknown]
  - Melaena [Unknown]

NARRATIVE: CASE EVENT DATE: 20160701
